FAERS Safety Report 6538043-4 (Version None)
Quarter: 2010Q1

REPORT INFORMATION
  Report Type: 
  Country: None (occurrence: None)
  Receive Date: 20100114
  Receipt Date: 20100113
  Transmission Date: 20100710
  Serious: Yes (Death)
  Sender: FDA-Public Use
  Company Number: US-WYE-H12980710

PATIENT
  Age: 33 Year
  Sex: Male

DRUGS (1)
  1. PRISTIQ [Suspect]
     Dosage: UNKNOWN DOSE FROM UNKNOWN START DATE TO JUN-2009
     Route: 048

REACTIONS (2)
  - ASPHYXIA [None]
  - COMPLETED SUICIDE [None]
